FAERS Safety Report 7824449-X (Version None)
Quarter: 2011Q4

REPORT INFORMATION
  Report Type: 
  Country: None (occurrence: None)
  Receive Date: 20111019
  Receipt Date: 20111012
  Transmission Date: 20120403
  Serious: Yes (Disabling, Other)
  Sender: FDA-Public Use
  Company Number: GB-ELI_LILLY_AND_COMPANY-GB201110002989

PATIENT
  Sex: Male

DRUGS (2)
  1. CIALIS [Suspect]
     Dosage: 5 MG, PRN
     Dates: start: 20110101
  2. CIALIS [Suspect]
     Dosage: 5 MG, PRN
     Dates: start: 20090101

REACTIONS (3)
  - OPTIC ISCHAEMIC NEUROPATHY [None]
  - BLINDNESS UNILATERAL [None]
  - INTENTIONAL DRUG MISUSE [None]
